FAERS Safety Report 11488795 (Version 3)
Quarter: 2016Q1

REPORT INFORMATION
  Report Type: Report from Study
  Country: CA (occurrence: CA)
  Receive Date: 20150910
  Receipt Date: 20160204
  Transmission Date: 20160525
  Serious: Yes (Life-Threatening, Hospitalization, Other)
  Sender: FDA-Public Use
  Company Number: CA-ROCHE-1205023

PATIENT
  Age: 71 Year
  Sex: Female
  Weight: 54.4 kg

DRUGS (16)
  1. RITUXAN [Suspect]
     Active Substance: RITUXIMAB
     Indication: RHEUMATOID ARTHRITIS
     Dosage: RECEIVED DOSE OF RITUXIMAB ON 02/DEC/2013 AND MOST RECENT DOSE ON 27/AUG/2015 PRIOR TO SAE
     Route: 042
     Dates: start: 20111207
  2. CORTISONE [Suspect]
     Active Substance: CORTISONE\HYDROCORTISONE
     Indication: ARTHRALGIA
     Dosage: LAST DOSE PRIOR TO SAE 27/AUG/2015
     Route: 065
  3. ACETAMINOPHEN. [Concomitant]
     Active Substance: ACETAMINOPHEN
     Indication: PREMEDICATION
     Route: 048
     Dates: start: 20111207
  4. LIPITOR [Concomitant]
     Active Substance: ATORVASTATIN CALCIUM
     Indication: BLOOD PRESSURE MEASUREMENT
  5. METOPROLOL. [Concomitant]
     Active Substance: METOPROLOL
     Indication: BLOOD PRESSURE MEASUREMENT
  6. ZYLOPRIM [Concomitant]
     Active Substance: ALLOPURINOL
  7. METHYLPREDNISOLONE. [Concomitant]
     Active Substance: METHYLPREDNISOLONE
     Indication: PREMEDICATION
     Route: 042
     Dates: start: 20111207
  8. ENALAPRIL [Concomitant]
     Active Substance: ENALAPRIL
     Indication: BLOOD PRESSURE MEASUREMENT
  9. NORVASC [Concomitant]
     Active Substance: AMLODIPINE BESYLATE
     Indication: BLOOD PRESSURE MEASUREMENT
  10. ASA [Concomitant]
     Active Substance: ASPIRIN
  11. PREDNISONE. [Concomitant]
     Active Substance: PREDNISONE
  12. DIPHENHYDRAMINE HCL [Concomitant]
     Active Substance: DIPHENHYDRAMINE HYDROCHLORIDE
     Indication: PREMEDICATION
     Route: 048
     Dates: start: 20111207
  13. INDAPAMIDE. [Concomitant]
     Active Substance: INDAPAMIDE
     Indication: BLOOD PRESSURE MEASUREMENT
  14. EZETROL [Concomitant]
     Active Substance: EZETIMIBE
  15. SYNTHROID [Concomitant]
     Active Substance: LEVOTHYROXINE SODIUM
     Indication: BLOOD PRESSURE MEASUREMENT
  16. METFORMIN [Concomitant]
     Active Substance: METFORMIN HYDROCHLORIDE

REACTIONS (11)
  - Myocardial infarction [Unknown]
  - Osteomyelitis [Recovered/Resolved]
  - Laceration [Recovered/Resolved]
  - Blood glucose increased [Unknown]
  - Anaemia [Not Recovered/Not Resolved]
  - Malaise [Unknown]
  - Feeling hot [Unknown]
  - Feeling cold [Unknown]
  - Vomiting [Unknown]
  - Wound [Recovered/Resolved]
  - Arthralgia [Not Recovered/Not Resolved]

NARRATIVE: CASE EVENT DATE: 2013
